FAERS Safety Report 8135120-1 (Version None)
Quarter: 2012Q1

REPORT INFORMATION
  Report Type: 
  Country: None (occurrence: None)
  Receive Date: 20120214
  Receipt Date: 20120209
  Transmission Date: 20120608
  Serious: Yes (Other)
  Sender: FDA-Public Use
  Company Number: US-BAYER-2012-003255

PATIENT
  Age: 74 Year
  Sex: Female

DRUGS (2)
  1. NEXAVAR [Suspect]
     Indication: RENAL CELL CARCINOMA
     Dosage: 400 MG, BID
     Dates: start: 20120109, end: 20120127
  2. ANTIHYPERTENSIVES [Concomitant]
     Dosage: UNK

REACTIONS (9)
  - RASH [None]
  - SKIN DISCOLOURATION [None]
  - PERIPHERAL COLDNESS [None]
  - BLOOD PRESSURE INCREASED [None]
  - BLOOD URINE PRESENT [None]
  - CEREBROVASCULAR ACCIDENT [None]
  - JAUNDICE [None]
  - LIVER INJURY [None]
  - PEDAL PULSE DECREASED [None]
